FAERS Safety Report 19482166 (Version 1)
Quarter: 2021Q3

REPORT INFORMATION
  Report Type: Spontaneous
  Country: GB (occurrence: GB)
  Receive Date: 20210701
  Receipt Date: 20210701
  Transmission Date: 20211014
  Serious: Yes (Other)
  Sender: FDA-Public Use
  Company Number: GB-ADVANZ PHARMA-202106004657

PATIENT

DRUGS (2)
  1. SARS?COV?2 VIRUS [Concomitant]
     Active Substance: SARS-COV-2
     Dosage: DOSE 2
     Dates: start: 20210603, end: 20210603
  2. PREDNISOLONE. [Suspect]
     Active Substance: PREDNISOLONE
     Indication: DERMATITIS ALLERGIC
     Dosage: 20 MG, QD
     Route: 048
     Dates: start: 20210610, end: 20210615

REACTIONS (1)
  - Cataract [Not Recovered/Not Resolved]

NARRATIVE: CASE EVENT DATE: 20210616
